FAERS Safety Report 4697969-7 (Version None)
Quarter: 2005Q2

REPORT INFORMATION
  Report Type: 
  Country: None (occurrence: None)
  Receive Date: 20050622
  Receipt Date: 20050622
  Transmission Date: 20051028
  Serious: Yes (Other)
  Sender: FDA-Public Use
  Company Number: None

PATIENT
  Sex: Male
  Weight: 73.2 kg

DRUGS (4)
  1. ETOPOSIDE [Suspect]
     Indication: ACUTE LYMPHOCYTIC LEUKAEMIA
     Dosage: 100 MG/M2 IV OVER 1 HR ON DAY (-3).
     Route: 042
     Dates: start: 20041210
  2. GM-CSF [Suspect]
     Dosage: 250 MCG/M2 SC QD STARTING ON DAY 0 UNTIL ANC }./= 1000/MCL
     Route: 058
  3. ALFA INTERFERON [Suspect]
     Dosage: 3 MU SC TIW FOR 25 MONTHS, STARTING ON DAY 30
  4. CYCLOSPORINE [Concomitant]

REACTIONS (7)
  - AGITATION [None]
  - BLOOD PRESSURE SYSTOLIC INCREASED [None]
  - BODY TEMPERATURE INCREASED [None]
  - BRAIN SCAN ABNORMAL [None]
  - CONVULSION [None]
  - RESTLESSNESS [None]
  - VISION BLURRED [None]
